FAERS Safety Report 4740635-X (Version None)
Quarter: 2005Q3

REPORT INFORMATION
  Report Type: 
  Country: None (occurrence: None)
  Receive Date: 20050801
  Receipt Date: 20050325
  Transmission Date: 20060218
  Serious: No
  Sender: FDA-Public Use
  Company Number: 800322

PATIENT
  Age: 40 Year
  Sex: Female

DRUGS (1)
  1. EXTRANEAL [Suspect]
     Dosage: 2.5 L; EVERY DAY; IP
     Route: 033
     Dates: start: 20050311

REACTIONS (2)
  - DERMATITIS EXFOLIATIVE [None]
  - RASH MACULAR [None]
